FAERS Safety Report 9032472 (Version 1)
Quarter: 2013Q1

REPORT INFORMATION
  Report Type: Spontaneous
  Country: GB (occurrence: None)
  Receive Date: 20130108
  Receipt Date: 20130108
  Transmission Date: 20140127
  Serious: Yes (Hospitalization)
  Sender: FDA-Public Use
  Company Number: 2012-23317

PATIENT
  Age: 72 Year
  Sex: Female

DRUGS (9)
  1. NAPROXEN (WATSON LABORATORIES) (NAPROXEN) UNK, UNKUNK [Suspect]
     Indication: PRODUCT USED FOR UNKNOWN INDICATION
     Dosage: INTERMITTENT USE
     Route: 048
     Dates: start: 20111221, end: 20120520
  2. SALBUTAMOL (SALBUTAMOL) [Concomitant]
  3. OMEPRAZOLE (OMEPRAZOLE) [Concomitant]
  4. BENDROFLUMETHIAZIDE (BENDROFLUMETHIAZIDE) [Concomitant]
  5. LACTULOSE (LACTULOSE) [Concomitant]
  6. QUININE SULPHATE (QUININE SULFATE) [Concomitant]
  7. RAMIPRIL (RAMIPRIL) [Concomitant]
  8. SENNA (SENNA ALEXANDRINA) [Concomitant]
  9. FOSTAIR (BECLOMETASONE DIPROPIONATE, FORMOTEROL FUMARATE) [Concomitant]

REACTIONS (4)
  - Duodenal ulcer [None]
  - Haemoglobin decreased [None]
  - Haematemesis [None]
  - Melaena [None]
